FAERS Safety Report 6220506-2 (Version None)
Quarter: 2009Q2

REPORT INFORMATION
  Report Type: 
  Country: None (occurrence: None)
  Receive Date: 20090610
  Receipt Date: 20090529
  Transmission Date: 20091009
  Serious: Yes (Hospitalization)
  Sender: FDA-Public Use
  Company Number: BE-PFIZER INC-2009213595

PATIENT
  Age: 50 Year

DRUGS (4)
  1. SUNITINIB MALATE [Suspect]
     Indication: SARCOMA
     Dosage: 50 MG, 1X/DAY
     Route: 048
     Dates: start: 20090504
  2. SELOZOK [Concomitant]
     Indication: PROPHYLAXIS
     Dosage: UNK
     Route: 048
     Dates: start: 20080101
  3. TRITACE [Concomitant]
     Indication: PROPHYLAXIS
     Dosage: UNK
     Dates: start: 20080101
  4. XANAX [Concomitant]
     Indication: PROPHYLAXIS
     Dosage: UNK
     Dates: start: 20080101

REACTIONS (3)
  - DIARRHOEA [None]
  - GENERAL PHYSICAL HEALTH DETERIORATION [None]
  - PLEURAL EFFUSION [None]
